FAERS Safety Report 9412520 (Version 1)
Quarter: 2013Q3

REPORT INFORMATION
  Report Type: Spontaneous
  Country: US (occurrence: None)
  Receive Date: 20130715
  Receipt Date: 20130715
  Transmission Date: 20140515
  Serious: Yes (Hospitalization, Other)
  Sender: FDA-Public Use
  Company Number: AUR-APL-2009-00003

PATIENT
  Age: 63 Year
  Sex: Female

DRUGS (3)
  1. GABAPENTIN (GABAPENTIN) [Suspect]
     Indication: DIABETIC NEUROPATHY
     Dosage: 90MG (300MG, THRICE A DAY)
  2. INSULIN [Concomitant]
  3. IRBESARTAN [Concomitant]

REACTIONS (8)
  - Fatigue [None]
  - Gait disturbance [None]
  - Areflexia [None]
  - Decreased vibratory sense [None]
  - Rhabdomyolysis [None]
  - Renal failure acute [None]
  - Blood potassium increased [None]
  - Haemodialysis [None]
